FAERS Safety Report 5567178-8 (Version None)
Quarter: 2007Q4

REPORT INFORMATION
  Report Type: 
  Country: None (occurrence: None)
  Receive Date: 20071219
  Receipt Date: 20071214
  Transmission Date: 20080405
  Serious: Yes (Hospitalization, Other)
  Sender: FDA-Public Use
  Company Number: US-ELI_LILLY_AND_COMPANY-US200711005702

PATIENT
  Sex: Male

DRUGS (13)
  1. HUMALOG [Suspect]
     Indication: DIABETES MELLITUS
     Dosage: 20 U, UNK
     Dates: start: 20070801
  2. HUMALOG MIX 75/25 [Suspect]
     Indication: DIABETES MELLITUS
     Dates: end: 20070801
  3. LANTUS [Concomitant]
     Indication: DIABETES MELLITUS
     Dosage: 60 U, DAILY (1/D)
  4. METFORMIN HCL [Concomitant]
     Indication: DIABETES MELLITUS
     Dosage: 1000 MG, DAILY (1/D)
  5. CRESTOR [Concomitant]
     Indication: HYPERLIPIDAEMIA
  6. DIOVAN [Concomitant]
     Indication: HYPERTENSION
  7. COREG [Concomitant]
     Indication: HYPERTENSION
  8. CYMBALTA [Concomitant]
     Indication: NEUROPATHY PERIPHERAL
  9. NIACIN [Concomitant]
     Indication: HYPERLIPIDAEMIA
  10. POTASSIUM CHLORIDE [Concomitant]
     Indication: OEDEMA
  11. SPIRONOLACTONE [Concomitant]
     Indication: OEDEMA
  12. LASIX [Concomitant]
     Indication: OEDEMA
  13. ASPIRIN [Concomitant]
     Indication: HYPERTENSION

REACTIONS (2)
  - CELLULITIS [None]
  - NEUROPATHIC ARTHROPATHY [None]
